FAERS Safety Report 6251642-2 (Version None)
Quarter: 2009Q2

REPORT INFORMATION
  Report Type: 
  Country: None (occurrence: None)
  Receive Date: 20090630
  Receipt Date: 20090618
  Transmission Date: 20091009
  Serious: Yes (Other)
  Sender: FDA-Public Use
  Company Number: US-PFIZER INC-2009229461

PATIENT
  Sex: Female
  Weight: 61.688 kg

DRUGS (10)
  1. CHANTIX [Suspect]
     Indication: SMOKING CESSATION THERAPY
     Dates: start: 20090101, end: 20090101
  2. NICOTROL [Suspect]
     Indication: SMOKING CESSATION THERAPY
     Route: 055
     Dates: start: 20090616
  3. VICODIN [Concomitant]
  4. MOBIC [Concomitant]
  5. SYNTHROID [Concomitant]
  6. DROSPIRENONE/ESTRADIOL [Concomitant]
  7. CRESTOR [Concomitant]
  8. NEURONTIN [Concomitant]
  9. ELAVIL [Concomitant]
  10. ACETYLSALICYLIC ACID [Concomitant]

REACTIONS (7)
  - BENIGN LUNG NEOPLASM [None]
  - DRUG INEFFECTIVE [None]
  - EMPHYSEMA [None]
  - MENTAL DISORDER [None]
  - NAUSEA [None]
  - NERVOUSNESS [None]
  - NIGHTMARE [None]
